FAERS Safety Report 4693333-5 (Version None)
Quarter: 2005Q2

REPORT INFORMATION
  Report Type: 
  Country: None (occurrence: None)
  Receive Date: 20050615
  Receipt Date: 20050601
  Transmission Date: 20051028
  Serious: Yes (Death)
  Sender: FDA-Public Use
  Company Number: USA050598267

PATIENT
  Age: 35 Year
  Sex: Male
  Weight: 128 kg

DRUGS (1)
  1. ZYPREXA [Suspect]
     Indication: SCHIZOAFFECTIVE DISORDER
     Dosage: 25 MG
     Dates: start: 20010901, end: 20041101

REACTIONS (2)
  - COMPLETED SUICIDE [None]
  - OVERDOSE [None]
